FAERS Safety Report 7276273-7 (Version None)
Quarter: 2011Q1

REPORT INFORMATION
  Report Type: 
  Country: None (occurrence: None)
  Receive Date: 20110131
  Receipt Date: 20110114
  Transmission Date: 20110831
  Serious: Yes (Hospitalization)
  Sender: FDA-Public Use
  Company Number: 2011SP002112

PATIENT
  Age: 56 Year
  Sex: Male
  Weight: 83 kg

DRUGS (2)
  1. PEG-INTRON [Suspect]
     Indication: HEPATITIS C
     Dosage: 04.5 ML;QW
     Dates: start: 20081104
  2. RIBAVIRIN [Suspect]
     Indication: HEPATITIS C
     Dosage: BID
     Dates: start: 20081104

REACTIONS (2)
  - PANCREATITIS [None]
  - PSEUDOCYST [None]
